FAERS Safety Report 17222229 (Version 1)
Quarter: 2020Q1

REPORT INFORMATION
  Report Type: Spontaneous
  Country: US (occurrence: US)
  Receive Date: 20200101
  Receipt Date: 20200101
  Transmission Date: 20200409
  Serious: Yes (Other)
  Sender: FDA-Public Use
  Company Number: US-MYLANLABS-2019M1128355

PATIENT

DRUGS (3)
  1. HEPARIN SODIUM INJECTION USP [Suspect]
     Active Substance: HEPARIN SODIUM
     Dosage: 4000 UNITS
     Route: 042
  2. HEPARIN SODIUM INJECTION USP [Suspect]
     Active Substance: HEPARIN SODIUM
     Indication: COAGULATION TIME ABNORMAL
     Dosage: UNK
     Route: 016
  3. HEPARIN SODIUM INJECTION USP [Suspect]
     Active Substance: HEPARIN SODIUM
     Dosage: 5000 UNITS
     Route: 042

REACTIONS (1)
  - Drug ineffective [Recovered/Resolved]
